FAERS Safety Report 6961607-0 (Version None)
Quarter: 2010Q3

REPORT INFORMATION
  Report Type: 
  Country: None (occurrence: None)
  Receive Date: 20100901
  Receipt Date: 20100819
  Transmission Date: 20110219
  Serious: Yes (Hospitalization, Other)
  Sender: FDA-Public Use
  Company Number: DE-MYLANLABS-2010S1014452

PATIENT
  Age: 43 Year
  Sex: Female
  Weight: 65 kg

DRUGS (3)
  1. TRAMADOL HCL [Suspect]
     Indication: SUICIDE ATTEMPT
     Route: 048
     Dates: start: 20100806, end: 20100806
  2. NALOXONE W/TILIDINE [Suspect]
     Indication: SUICIDE ATTEMPT
     Route: 048
     Dates: start: 20100806, end: 20100806
  3. ALCOHOL [Suspect]
     Indication: SUICIDE ATTEMPT
     Route: 048
     Dates: start: 20100806, end: 20100806

REACTIONS (5)
  - HYPERTENSION [None]
  - INTENTIONAL OVERDOSE [None]
  - SOMNOLENCE [None]
  - SUICIDE ATTEMPT [None]
  - TACHYCARDIA [None]
